FAERS Safety Report 21446335 (Version 2)
Quarter: 2022Q4

REPORT INFORMATION
  Report Type: Spontaneous
  Country: US (occurrence: US)
  Receive Date: 20221012
  Receipt Date: 20221013
  Transmission Date: 20230113
  Serious: No
  Sender: FDA-Public Use
  Company Number: US-PFIZER INC-202201222630

PATIENT
  Age: 28 Year
  Sex: Female
  Weight: 81.65 kg

DRUGS (3)
  1. PAXLOVID [Suspect]
     Active Substance: NIRMATRELVIR\RITONAVIR
     Indication: COVID-19 treatment
     Dosage: [PF-07321332 300 MG]/[RITONAVIR 100 MG]; 2X/DAY
     Route: 048
     Dates: start: 20221009, end: 20221010
  2. NORTRIPTYLINE HYDROCHLORIDE [Concomitant]
     Active Substance: NORTRIPTYLINE HYDROCHLORIDE
     Dosage: TAKES A BIG DOSE OF THAT
  3. MELATONIN [Concomitant]
     Active Substance: MELATONIN
     Indication: Sleep disorder
     Dosage: UNK

REACTIONS (5)
  - Dizziness [Recovered/Resolved]
  - Fatigue [Recovering/Resolving]
  - Headache [Recovering/Resolving]
  - Illness [Unknown]
  - Dizziness postural [Recovered/Resolved]

NARRATIVE: CASE EVENT DATE: 20221009
